FAERS Safety Report 6823369-7 (Version None)
Quarter: 2010Q3

REPORT INFORMATION
  Report Type: 
  Country: None (occurrence: None)
  Receive Date: 20100708
  Receipt Date: 20100702
  Transmission Date: 20110219
  Serious: Yes (Other)
  Sender: FDA-Public Use
  Company Number: US-AMGEN-US337458

PATIENT
  Sex: Female

DRUGS (7)
  1. NPLATE [Suspect]
     Indication: IDIOPATHIC THROMBOCYTOPENIC PURPURA
     Dates: start: 20081222, end: 20090604
  2. ALLEGRA [Concomitant]
     Route: 048
     Dates: start: 20031101
  3. BONIVA [Concomitant]
  4. UNSPECIFIED OPHTHALMIC PREPARATION [Concomitant]
  5. MAXZIDE [Concomitant]
     Route: 048
     Dates: start: 20060320
  6. INSULIN [Concomitant]
  7. PREDNISONE [Concomitant]

REACTIONS (4)
  - DRUG INEFFECTIVE [None]
  - PLATELET COUNT DECREASED [None]
  - THERAPEUTIC RESPONSE DECREASED [None]
  - THROMBOCYTOPENIA [None]
